FAERS Safety Report 16691938 (Version 1)
Quarter: 2019Q3

REPORT INFORMATION
  Report Type: Spontaneous
  Country: US (occurrence: US)
  Receive Date: 20190812
  Receipt Date: 20190812
  Transmission Date: 20191004
  Serious: No
  Sender: FDA-Public Use
  Company Number: US-BIOGEN-2019BI00735721

PATIENT
  Age: 78 Year
  Sex: Female

DRUGS (2)
  1. TECFIDERA [Suspect]
     Active Substance: DIMETHYL FUMARATE
     Route: 048
     Dates: start: 20190508, end: 20190511
  2. TECFIDERA [Suspect]
     Active Substance: DIMETHYL FUMARATE
     Indication: MULTIPLE SCLEROSIS
     Dosage: STARTING DOSE
     Route: 048
     Dates: start: 20190429

REACTIONS (14)
  - Ankle fracture [Not Recovered/Not Resolved]
  - Malaise [Unknown]
  - Musculoskeletal disorder [Not Recovered/Not Resolved]
  - Motor dysfunction [Not Recovered/Not Resolved]
  - Dizziness [Recovered/Resolved]
  - Abdominal discomfort [Unknown]
  - Hyperhidrosis [Unknown]
  - Tibia fracture [Not Recovered/Not Resolved]
  - Diarrhoea [Not Recovered/Not Resolved]
  - Dyspepsia [Recovered/Resolved]
  - Fall [Recovered/Resolved]
  - Food intolerance [Not Recovered/Not Resolved]
  - Nausea [Unknown]
  - Hot flush [Not Recovered/Not Resolved]

NARRATIVE: CASE EVENT DATE: 201905
